FAERS Safety Report 7717191-7 (Version None)
Quarter: 2011Q3

REPORT INFORMATION
  Report Type: 
  Country: None (occurrence: None)
  Receive Date: 20110826
  Receipt Date: 20110826
  Transmission Date: 20111222
  Serious: Yes (Hospitalization)
  Sender: FDA-Public Use
  Company Number: None

PATIENT
  Sex: Male
  Weight: 102.6 kg

DRUGS (7)
  1. PEG-L-ASPARAGINASE (K-H) [Suspect]
     Dosage: 11355 IU
  2. CYTARABINE [Suspect]
     Dosage: 1400 MG
  3. DOXORUBICIN HYDROCHLORIDE [Suspect]
     Dosage: 171 MG
  4. VINCRISTINE SULFATE [Suspect]
     Dosage: 10 MG
  5. DEXAMETHASONE [Suspect]
     Dosage: 168 MG
  6. CYCLOPHOSPHAMIDE [Suspect]
     Dosage: 2300 MG
  7. METHOTREXATE [Suspect]
     Dosage: 45 MG

REACTIONS (8)
  - HYPERTENSION [None]
  - GENERALISED OEDEMA [None]
  - ABDOMINAL DISTENSION [None]
  - PROTEINURIA [None]
  - FATIGUE [None]
  - INCORRECT DRUG ADMINISTRATION DURATION [None]
  - FLUID OVERLOAD [None]
  - INCORRECT DOSE ADMINISTERED [None]
